FAERS Safety Report 6315443-9 (Version None)
Quarter: 2009Q3

REPORT INFORMATION
  Report Type: 
  Country: None (occurrence: None)
  Receive Date: 20090819
  Receipt Date: 20090807
  Transmission Date: 20100115
  Serious: Yes (Disabling)
  Sender: FDA-Public Use
  Company Number: FR-PFIZER INC-2009251688

PATIENT
  Age: 63 Year

DRUGS (5)
  1. DEPO-MEDROL [Suspect]
     Indication: MANTLE CELL LYMPHOMA
     Dosage: 40 MG, SINGLE
     Route: 037
     Dates: start: 20090331, end: 20090331
  2. ARACYTINE [Suspect]
     Indication: MANTLE CELL LYMPHOMA
     Dosage: UNK
     Route: 037
     Dates: start: 20090303, end: 20090303
  3. ARACYTINE [Suspect]
     Dosage: 40 MG, SINGLE
     Route: 037
     Dates: start: 20090331, end: 20090331
  4. CYTARABINE [Suspect]
     Indication: MANTLE CELL LYMPHOMA
     Dosage: 3600 MG, SINGLE
     Route: 042
     Dates: start: 20090331, end: 20090331
  5. METHOTREXATE [Suspect]
     Indication: MANTLE CELL LYMPHOMA
     Dosage: 15 MG, SINGLE
     Route: 037
     Dates: start: 20090331, end: 20090331

REACTIONS (2)
  - MYELITIS [None]
  - PARAPLEGIA [None]
